FAERS Safety Report 10485922 (Version 1)
Quarter: 2014Q4

REPORT INFORMATION
  Report Type: Spontaneous
  Country: SG (occurrence: SG)
  Receive Date: 20141001
  Receipt Date: 20141001
  Transmission Date: 20150528
  Serious: Yes (Other)
  Sender: FDA-Public Use
  Company Number: SG-CIPLA LTD.-2014SG01451

PATIENT
  Age: 76 Year
  Sex: Female

DRUGS (1)
  1. ALENDRONATE [Suspect]
     Active Substance: ALENDRONATE SODIUM
     Dosage: UNK
     Dates: end: 2009

REACTIONS (2)
  - Fracture [Unknown]
  - Fracture nonunion [Unknown]
